FAERS Safety Report 11915961 (Version 1)
Quarter: 2016Q1

REPORT INFORMATION
  Report Type: Spontaneous
  Country: US (occurrence: None)
  Receive Date: 20160113
  Receipt Date: 20160113
  Transmission Date: 20160526
  Serious: Yes (Other)
  Sender: FDA-Public Use
  Company Number: None

PATIENT
  Age: 62 Year
  Sex: Male

DRUGS (2)
  1. HUMIRA [Suspect]
     Active Substance: ADALIMUMAB
     Indication: PSORIATIC ARTHROPATHY
     Dosage: EVERY OTHER WEEK
     Route: 058
     Dates: start: 20151110, end: 20151210
  2. HUMIRA [Suspect]
     Active Substance: ADALIMUMAB
     Indication: PSORIASIS
     Dosage: EVERY OTHER WEEK
     Route: 058
     Dates: start: 20151110, end: 20151210

REACTIONS (3)
  - Arthralgia [None]
  - Drug dose omission [None]
  - Psoriasis [None]

NARRATIVE: CASE EVENT DATE: 20160112
